FAERS Safety Report 5198141-7 (Version None)
Quarter: 2006Q4

REPORT INFORMATION
  Report Type: 
  Country: None (occurrence: None)
  Receive Date: 20061228
  Receipt Date: 20061228
  Transmission Date: 20070319
  Serious: Yes (Hospitalization)
  Sender: FDA-Public Use
  Company Number: None

PATIENT
  Sex: Female
  Weight: 88.2 kg

DRUGS (3)
  1. DOXORUBICIN HYDROCHLORIDE [Suspect]
     Dosage: 85 MG - 45MG/M2, IV, DAY 1 EVERY 21 DAYS
     Route: 042
  2. TAXOL [Suspect]
     Dosage: 305 MG
  3. CISPLATIN [Suspect]
     Dosage: 95 MG

REACTIONS (1)
  - CEREBROVASCULAR DISORDER [None]
